FAERS Safety Report 8373398-X (Version None)
Quarter: 2012Q2

REPORT INFORMATION
  Report Type: 
  Country: None (occurrence: None)
  Receive Date: 20120521
  Receipt Date: 20111012
  Transmission Date: 20120825
  Serious: No
  Sender: FDA-Public Use
  Company Number: US-TEVA-2011005285

PATIENT
  Sex: Male

DRUGS (2)
  1. ALLOPURINOL [Concomitant]
  2. TREANDA [Suspect]
     Indication: CHRONIC LYMPHOCYTIC LEUKAEMIA
     Route: 042
     Dates: start: 20110523

REACTIONS (2)
  - THROMBOPHLEBITIS SUPERFICIAL [None]
  - CELLULITIS [None]
